FAERS Safety Report 12762643 (Version 1)
Quarter: 2016Q3

REPORT INFORMATION
  Report Type: Spontaneous
  Country: IT (occurrence: IT)
  Receive Date: 20160920
  Receipt Date: 20160920
  Transmission Date: 20161109
  Serious: Yes (Other)
  Sender: FDA-Public Use
  Company Number: IT-BAYER-2016-181425

PATIENT
  Sex: Female

DRUGS (1)
  1. YASMINELLE [Suspect]
     Active Substance: DROSPIRENONE
     Dosage: UNK
     Dates: start: 2008

REACTIONS (2)
  - Respiratory disorder [None]
  - Cardiovascular disorder [None]
